FAERS Safety Report 9283931 (Version 1)
Quarter: 2013Q2

REPORT INFORMATION
  Report Type: Spontaneous
  Country: IT (occurrence: IT)
  Receive Date: 20130510
  Receipt Date: 20130510
  Transmission Date: 20140414
  Serious: Yes (Other)
  Sender: FDA-Public Use
  Company Number: IT-VERTEX PHARMACEUTICALS INC-2013-005878

PATIENT
  Age: 54 Year
  Sex: Male

DRUGS (3)
  1. INCIVO [Suspect]
     Indication: ACUTE HEPATITIS C
     Route: 048
  2. PEGYLATED INTERFERON ALFA-2A [Suspect]
     Indication: ACUTE HEPATITIS C
     Dosage: DOSAGE FORM: UNSPECIFIED
     Route: 065
  3. RIBAVIRIN [Suspect]
     Indication: ACUTE HEPATITIS C
     Dosage: DOSAGE FORM: UNSPECIFIED
     Route: 065

REACTIONS (1)
  - Rash [Unknown]
